FAERS Safety Report 7708726-9 (Version None)
Quarter: 2011Q3

REPORT INFORMATION
  Report Type: 
  Country: None (occurrence: None)
  Receive Date: 20110825
  Receipt Date: 20110825
  Transmission Date: 20111222
  Serious: Yes (Death)
  Sender: FDA-Public Use
  Company Number: None

PATIENT
  Sex: Male
  Weight: 80 kg

DRUGS (12)
  1. ASPIRIN [Concomitant]
     Route: 048
  2. LISINOPRIL [Concomitant]
     Route: 048
  3. TNKASE [Suspect]
     Indication: CEREBROVASCULAR ACCIDENT
     Dosage: 8MG
     Route: 042
     Dates: start: 20110812, end: 20110812
  4. HYDROCODONE BITARTRATE AND ACETAMINOPHEN [Concomitant]
     Route: 048
  5. GLIPIZIDE [Concomitant]
  6. COREG [Concomitant]
  7. LOMOTIL [Concomitant]
  8. DEXILANT [Concomitant]
  9. ALBUTEROL INHALER [Concomitant]
  10. KLOR-CON [Concomitant]
  11. SIMVASTATIN [Concomitant]
     Route: 048
  12. FUROSEMIDE [Concomitant]

REACTIONS (1)
  - CEREBRAL HAEMATOMA [None]
